FAERS Safety Report 6143707-0 (Version None)
Quarter: 2009Q2

REPORT INFORMATION
  Report Type: 
  Country: None (occurrence: None)
  Receive Date: 20090403
  Receipt Date: 20090331
  Transmission Date: 20091009
  Serious: Yes (Death, Hospitalization)
  Sender: FDA-Public Use
  Company Number: US-AMGEN-US297931

PATIENT
  Sex: Female
  Weight: 63.5 kg

DRUGS (13)
  1. PROCRIT [Suspect]
     Indication: RENAL FAILURE CHRONIC
     Route: 058
     Dates: start: 20080313, end: 20080508
  2. ATENOLOL [Concomitant]
     Route: 048
     Dates: start: 20030101
  3. ANASTROZOLE [Concomitant]
     Route: 048
     Dates: start: 20030101
  4. ENALAPRIL [Concomitant]
     Route: 048
     Dates: start: 20030101
  5. CILOSTAZOL [Concomitant]
     Route: 048
     Dates: start: 20000101
  6. ISOSORBIDE MONONITRATE [Concomitant]
     Route: 048
     Dates: start: 20000101
  7. LOVASTATIN [Concomitant]
     Route: 048
     Dates: start: 20050101
  8. OMEPRAZOLE [Concomitant]
     Route: 048
     Dates: start: 20050101
  9. CLONIDINE [Concomitant]
     Route: 048
     Dates: start: 20030101
  10. DIPYRIDAMOLE [Concomitant]
     Route: 048
     Dates: start: 20000101
  11. DULCOLAX [Concomitant]
     Route: 048
     Dates: start: 20050101
  12. INSULATARD NPH HUMAN [Concomitant]
     Route: 058
  13. MULTI-VITAMINS [Concomitant]
     Route: 048
     Dates: start: 20080313

REACTIONS (1)
  - CEREBRAL HAEMORRHAGE [None]
